FAERS Safety Report 4392733-0 (Version None)
Quarter: 2004Q3

REPORT INFORMATION
  Report Type: 
  Country: None (occurrence: None)
  Receive Date: 20040707
  Receipt Date: 20040621
  Transmission Date: 20050211
  Serious: Yes (Hospitalization, Disabling)
  Sender: FDA-Public Use
  Company Number: 2004SE03617

PATIENT
  Age: 61 Year
  Sex: Female
  Weight: 65 kg

DRUGS (2)
  1. CRESTOR [Suspect]
     Indication: HYPERCHOLESTEROLAEMIA
     Dosage: 10 MG DAILY PO
     Route: 048
     Dates: start: 20040417, end: 20040517
  2. EZETIMIBE [Concomitant]

REACTIONS (9)
  - BODY TEMPERATURE INCREASED [None]
  - CONSTIPATION [None]
  - HEADACHE [None]
  - HYPOTENSION [None]
  - LIVER DISORDER [None]
  - MYALGIA [None]
  - NAUSEA [None]
  - PAIN IN EXTREMITY [None]
  - URINARY TRACT INFECTION [None]
